FAERS Safety Report 4943702-0 (Version None)
Quarter: 2006Q1

REPORT INFORMATION
  Report Type: 
  Country: None (occurrence: None)
  Receive Date: 20060314
  Receipt Date: 20051213
  Transmission Date: 20060701
  Serious: Yes (Other)
  Sender: FDA-Public Use
  Company Number: FR-MERCK-0512USA03338

PATIENT
  Age: 59 Year
  Sex: Male

DRUGS (4)
  1. ZOCOR [Suspect]
     Route: 048
     Dates: start: 20041117
  2. PLAVIX [Concomitant]
     Route: 048
  3. TRIATEC [Concomitant]
     Route: 048
     Dates: end: 20051020
  4. KARDEGIC [Concomitant]
     Route: 048

REACTIONS (3)
  - BLOOD BILIRUBIN INCREASED [None]
  - JAUNDICE [None]
  - MYOCARDIAL INFARCTION [None]
